FAERS Safety Report 5867141-3 (Version None)
Quarter: 2008Q3

REPORT INFORMATION
  Report Type: 
  Country: None (occurrence: None)
  Receive Date: 20080828
  Receipt Date: 20080828
  Transmission Date: 20090109
  Serious: Yes (Other)
  Sender: FDA-Public Use
  Company Number: None

PATIENT
  Sex: Male

DRUGS (1)
  1. VALPROIC ACID [Suspect]

REACTIONS (2)
  - AMMONIA INCREASED [None]
  - METABOLIC DISORDER [None]
